FAERS Safety Report 16124802 (Version 1)
Quarter: 2019Q1

REPORT INFORMATION
  Report Type: Report from Study
  Country: US (occurrence: US)
  Receive Date: 20190327
  Receipt Date: 20190327
  Transmission Date: 20190418
  Serious: Yes (Hospitalization)
  Sender: FDA-Public Use
  Company Number: US-B.I. PHARMACEUTICALS,INC./RIDGEFIELD-2019-BI-012087

PATIENT
  Sex: Female

DRUGS (1)
  1. OFEV [Suspect]
     Active Substance: NINTEDANIB
     Indication: RESPIRATORY THERAPY
     Dosage: TAKE 1 CAPSULE (100 MG) BY MOUTH
     Route: 048

REACTIONS (2)
  - Emphysema [Not Recovered/Not Resolved]
  - Pneumothorax [Not Recovered/Not Resolved]
